FAERS Safety Report 13679331 (Version 1)
Quarter: 2017Q2

REPORT INFORMATION
  Report Type: Spontaneous
  Country: LT (occurrence: LT)
  Receive Date: 20170622
  Receipt Date: 20170622
  Transmission Date: 20170830
  Serious: Yes (Other)
  Sender: FDA-Public Use
  Company Number: LT-JNJFOC-20170620212

PATIENT
  Age: 86 Year
  Sex: Female

DRUGS (3)
  1. CRANBERRY. [Concomitant]
     Active Substance: CRANBERRY
     Indication: DYSURIA
     Route: 065
  2. XARELTO [Suspect]
     Active Substance: RIVAROXABAN
     Indication: THROMBOSIS PROPHYLAXIS
     Route: 048
     Dates: start: 20170407
  3. BEARBERRY EXTRACT [Concomitant]
     Active Substance: ARCTOSTAPHYLOS UVA-URSI LEAF\HOMEOPATHICS
     Indication: DYSURIA
     Route: 065

REACTIONS (1)
  - Cystitis bacterial [Not Recovered/Not Resolved]

NARRATIVE: CASE EVENT DATE: 20170602
